FAERS Safety Report 25853969 (Version 1)
Quarter: 2025Q3

REPORT INFORMATION
  Report Type: Spontaneous
  Country: EU (occurrence: EU)
  Receive Date: 20250926
  Receipt Date: 20250926
  Transmission Date: 20251020
  Serious: Yes (Other)
  Sender: ELI LILLY AND COMPANY
  Company Number: None

PATIENT
  Age: 66 Year
  Sex: Female

DRUGS (4)
  1. TALTZ [Suspect]
     Active Substance: IXEKIZUMAB
     Indication: Psoriatic arthropathy
     Route: 058
     Dates: start: 20250802, end: 20250802
  2. TALTZ [Suspect]
     Active Substance: IXEKIZUMAB
     Route: 058
     Dates: start: 20250902
  3. KETOPROFEN [Suspect]
     Active Substance: KETOPROFEN
     Indication: Arthralgia
     Dosage: 200 MG, DAILY
     Route: 048
     Dates: start: 20250728, end: 20250825
  4. KETOPROFEN [Suspect]
     Active Substance: KETOPROFEN
     Route: 065

REACTIONS (1)
  - Paronychia [Recovering/Resolving]

NARRATIVE: CASE EVENT DATE: 20250826
